FAERS Safety Report 9246732 (Version 1)
Quarter: 2013Q2

REPORT INFORMATION
  Report Type: Spontaneous
  Country: US (occurrence: US)
  Receive Date: 20130422
  Receipt Date: 20130422
  Transmission Date: 20140414
  Serious: No
  Sender: FDA-Public Use
  Company Number: US-ABBOTT-12P-163-0995868-00

PATIENT
  Age: 3 Year
  Sex: Male

DRUGS (3)
  1. LUPRON DEPOT-PED [Suspect]
     Indication: PRECOCIOUS PUBERTY
     Dates: end: 2011
  2. LUPRON DEPOT-PED [Suspect]
  3. LUPRON DEPOT-PED [Suspect]
     Indication: PRECOCIOUS PUBERTY

REACTIONS (2)
  - Precocious puberty [Recovered/Resolved]
  - Off label use [Unknown]
